FAERS Safety Report 26061458 (Version 1)
Quarter: 2025Q4

REPORT INFORMATION
  Report Type: Other
  Country: US (occurrence: US)
  Receive Date: 20251118
  Receipt Date: 20251118
  Transmission Date: 20260117
  Serious: Yes (Hospitalization)
  Sender: MISSION PHARMACAL COMPANY
  Company Number: US-Mission Pharmacal Company-2188824

PATIENT
  Age: 85 Year
  Sex: Male

DRUGS (18)
  1. THIOLA EC [Suspect]
     Active Substance: TIOPRONIN
     Indication: Cystinuria
     Dates: start: 20210221
  2. LEVOTHYROXINE [Concomitant]
     Active Substance: LEVOTHYROXINE
  3. GABAPENTIN [Concomitant]
     Active Substance: GABAPENTIN
  4. TAMSULOSIN [Concomitant]
     Active Substance: TAMSULOSIN
  5. ALBUTEROL [Concomitant]
     Active Substance: ALBUTEROL
  6. PANTOPRAZOLE [Concomitant]
     Active Substance: PANTOPRAZOLE
  7. LOSARTAN [Concomitant]
     Active Substance: LOSARTAN
  8. PROLIA [Concomitant]
     Active Substance: DENOSUMAB
  9. VITAMIN B12 [Concomitant]
     Active Substance: CYANOCOBALAMIN
  10. VITAMIN D [Concomitant]
     Active Substance: VITAMIN D NOS
  11. DONEPEZIL [Concomitant]
     Active Substance: DONEPEZIL
  12. ELIQUIS [Concomitant]
     Active Substance: APIXABAN
  13. ATORVASTATIN [Concomitant]
     Active Substance: ATORVASTATIN
  14. ASPIRIN [Concomitant]
     Active Substance: ASPIRIN
  15. JARDIANCE [Concomitant]
     Active Substance: EMPAGLIFLOZIN
  16. VESICARE [Concomitant]
     Active Substance: SOLIFENACIN SUCCINATE
  17. DIVALPROEX SODIUM [Concomitant]
     Active Substance: DIVALPROEX SODIUM
  18. PREDNISONE [Concomitant]
     Active Substance: PREDNISONE

REACTIONS (1)
  - Pneumonia [Unknown]
